FAERS Safety Report 15536235 (Version 1)
Quarter: 2018Q4

REPORT INFORMATION
  Report Type: Spontaneous
  Country: IE (occurrence: IE)
  Receive Date: 20181015
  Receipt Date: 20181015
  Transmission Date: 20190205
  Serious: Yes (Disabling)
  Sender: FDA-Public Use
  Company Number: None

PATIENT
  Age: 36 Year
  Sex: Female
  Weight: 80 kg

DRUGS (28)
  1. CHIA SEEDS [Concomitant]
     Active Substance: OMEGA-3 FATTY ACIDS
  2. LAMICTAL [Suspect]
     Active Substance: LAMOTRIGINE
     Indication: BIPOLAR DISORDER
     Dosage: ?          QUANTITY:4 TABLET(S);?
     Route: 048
     Dates: start: 20180825, end: 201810
  3. BENADRYL [Concomitant]
     Active Substance: DIPHENHYDRAMINE HYDROCHLORIDE
  4. MAGNESIUM CITRATE. [Concomitant]
     Active Substance: MAGNESIUM CITRATE
  5. CUCCUMIN AND BLACK PEPPER [Concomitant]
  6. PALEXIA IR [Concomitant]
  7. LACTULOSE PREBIOTIC PROBIOTICS [Concomitant]
  8. TEA TREE OIL. [Concomitant]
     Active Substance: TEA TREE OIL
  9. MAXOLON [Concomitant]
     Active Substance: METOCLOPRAMIDE HYDROCHLORIDE
  10. COQ10 [Concomitant]
     Active Substance: UBIDECARENONE
  11. FENNEL SEEDS [Concomitant]
  12. PRUNES [Concomitant]
  13. PALEXIA [Concomitant]
     Active Substance: TAPENTADOL HYDROCHLORIDE
  14. CACAO POWDER [Concomitant]
  15. OIL OF OREGANO [Concomitant]
  16. VITAMIN C [Concomitant]
     Active Substance: ASCORBIC ACID
  17. MACA POWDER [Concomitant]
  18. WHEATGRASS POWDER [Concomitant]
  19. CITALOPRAM [Concomitant]
     Active Substance: CITALOPRAM HYDROBROMIDE
  20. EUCALYPTUS OIL [Concomitant]
     Active Substance: EUCALYPTUS OIL
  21. XANAX [Concomitant]
     Active Substance: ALPRAZOLAM
  22. VITAMIN D [Concomitant]
     Active Substance: CHOLECALCIFEROL
  23. EVENING PRIMROSE OIL [Concomitant]
     Active Substance: EVENING PRIMROSE OIL\HERBALS
  24. PURE BAKING SODA [Concomitant]
     Active Substance: SODIUM BICARBONATE
  25. BLACK WALNUT AND WORMWOOD DIETAMACEOUS EARTH NEEM POWDER [Concomitant]
  26. VITAMIN B COMPLEX [Concomitant]
     Active Substance: CYANOCOBALAMIN\DEXPANTHENOL\NIACINAMIDE\PYRIDOXINE HYDROCHLORIDE\RIBOFLAVIN 5^-PHOSPHATE SODIUM\THIAMINE HYDROCHLORIDE\VITAMIN B COMPLEX
  27. CAMPHOR OIL [Concomitant]
     Active Substance: CAMPHOR OIL
  28. COCONUT OIL [Concomitant]
     Active Substance: COCONUT OIL

REACTIONS (11)
  - Photophobia [None]
  - Back pain [None]
  - Migraine [None]
  - Sleep terror [None]
  - Fibromyalgia [None]
  - Headache [None]
  - Vertigo [None]
  - Nausea [None]
  - Impaired driving ability [None]
  - Hyperacusis [None]
  - Sleep paralysis [None]
